FAERS Safety Report 10233761 (Version 1)
Quarter: 2014Q2

REPORT INFORMATION
  Report Type: Spontaneous
  Country: IT (occurrence: IT)
  Receive Date: 20140612
  Receipt Date: 20140612
  Transmission Date: 20141212
  Serious: Yes (Hospitalization)
  Sender: FDA-Public Use
  Company Number: IT-WATSON-2014-12216

PATIENT
  Age: 35 Year
  Sex: Female

DRUGS (3)
  1. LORMETAZEPAM [Suspect]
     Indication: ANXIETY
     Dosage: 250 MG, DAILY
     Route: 048
     Dates: start: 19960911, end: 20120911
  2. DIAZEPAM [Suspect]
     Indication: ANXIETY
     Dosage: 250 GTT DROP(S), DAILY
     Route: 048
     Dates: start: 20100911, end: 20120911
  3. LORAZEPAM [Suspect]
     Indication: ANXIETY
     Dosage: 30 MG, DAILY
     Route: 048
     Dates: start: 20100911, end: 20120911

REACTIONS (1)
  - Drug dependence [Recovering/Resolving]
